FAERS Safety Report 8789298 (Version 1)
Quarter: 2012Q4

REPORT INFORMATION
  Report Type: Spontaneous
  Country: GB (occurrence: None)
  Receive Date: 20120905
  Receipt Date: 20120905
  Transmission Date: 20130627
  Serious: Yes (Life-Threatening)
  Sender: FDA-Public Use
  Company Number: GER/UKI/12/0025535

PATIENT
  Age: 13 Year
  Sex: Male
  Weight: 61.8 kg

DRUGS (2)
  1. RISPERIDONE [Suspect]
     Indication: AGGRESSION
     Route: 048
     Dates: start: 20120420, end: 20120803
  2. MELATONIN [Concomitant]
     Indication: ATTENTION DEFICIT-HYPERACTIVITY DISORDER

REACTIONS (2)
  - Laryngospasm [None]
  - Oculogyric crisis [None]
